FAERS Safety Report 8216838-9 (Version None)
Quarter: 2012Q1

REPORT INFORMATION
  Report Type: 
  Country: None (occurrence: None)
  Receive Date: 20120316
  Receipt Date: 20120306
  Transmission Date: 20120608
  Serious: Yes (Other)
  Sender: FDA-Public Use
  Company Number: JP-AMGEN-JPNSP2012015620

PATIENT
  Age: 47 Year
  Sex: Male

DRUGS (10)
  1. CINACALCET HYDROCHLORIDE [Suspect]
     Indication: HYPERPARATHYROIDISM SECONDARY
     Dosage: 25 MG, TID
     Route: 048
     Dates: start: 20110101
  2. OLMESARTAN MEDOXOMIL [Suspect]
     Dosage: UNK UNK, UNK
     Route: 048
  3. POLAPREZINC [Suspect]
     Dosage: UNK UNK, UNK
     Route: 048
  4. LOXOPROFEN [Suspect]
     Dosage: UNK UNK, UNK
     Route: 048
  5. METHYLDOPA [Suspect]
     Dosage: UNK UNK, UNK
     Route: 048
  6. CARVEDILOL [Suspect]
     Dosage: UNK UNK, UNK
     Route: 048
  7. RISPERIDONE [Suspect]
     Dosage: UNK UNK, UNK
     Route: 048
  8. DOXAZOSIN MESYLATE [Suspect]
     Dosage: UNK UNK, UNK
     Route: 048
  9. DAI-KENCHU-TO [Suspect]
     Dosage: UNK UNK, UNK
     Route: 048
  10. AMLODIPINE [Concomitant]
     Dosage: UNK
     Route: 048

REACTIONS (1)
  - BLOOD GLUCOSE DECREASED [None]
